FAERS Safety Report 22843172 (Version 2)
Quarter: 2025Q1

REPORT INFORMATION
  Report Type: Report from Study
  Country: GB (occurrence: GB)
  Receive Date: 20230821
  Receipt Date: 20250117
  Transmission Date: 20250409
  Serious: Yes (Other)
  Sender: TEVA
  Company Number: GB-TEVA-2023-GB-2919379

PATIENT
  Age: 32 Year
  Sex: Male

DRUGS (1)
  1. AJOVY [Suspect]
     Active Substance: FREMANEZUMAB-VFRM
     Indication: Migraine
     Dosage: DOSAGE TEXT: 225MG/1.5ML
     Route: 065

REACTIONS (2)
  - Gallbladder operation [Unknown]
  - Cluster headache [Unknown]
